FAERS Safety Report 18016199 (Version 2)
Quarter: 2020Q3

REPORT INFORMATION
  Report Type: Report from Study
  Country: BR (occurrence: BR)
  Receive Date: 20200713
  Receipt Date: 20200722
  Transmission Date: 20201103
  Serious: Yes (Disabling, Other)
  Sender: FDA-Public Use
  Company Number: NVSC2019BR009155

PATIENT
  Age: 74 Year
  Sex: Male
  Weight: 89 kg

DRUGS (4)
  1. COSENTYX [Suspect]
     Active Substance: SECUKINUMAB
     Indication: PSORIATIC ARTHROPATHY
     Dosage: 150 MG, UNKNOWN
     Route: 065
     Dates: start: 2018
  2. COSENTYX [Suspect]
     Active Substance: SECUKINUMAB
     Dosage: 150 MG, QMO
     Route: 058
     Dates: start: 20180827
  3. COSENTYX [Suspect]
     Active Substance: SECUKINUMAB
     Dosage: 150 MG, UNKNOWN
     Route: 065
  4. DIOVAN [Suspect]
     Active Substance: VALSARTAN
     Indication: HYPERTENSION
     Dosage: 160 MG, OT
     Route: 065

REACTIONS (5)
  - Product prescribing error [Not Recovered/Not Resolved]
  - Product dose omission issue [Unknown]
  - Arrhythmia [Unknown]
  - Head discomfort [Not Recovered/Not Resolved]
  - Cardiomegaly [Unknown]

NARRATIVE: CASE EVENT DATE: 201810
